FAERS Safety Report 10040767 (Version 1)
Quarter: 2014Q1

REPORT INFORMATION
  Report Type: Spontaneous
  Country: US (occurrence: None)
  Receive Date: 20140326
  Receipt Date: 20140326
  Transmission Date: 20141002
  Serious: Yes (Other)
  Sender: FDA-Public Use
  Company Number: None

PATIENT
  Age: 67 Year
  Sex: Male
  Weight: 149.69 kg

DRUGS (2)
  1. FUROSEMIDE [Suspect]
     Indication: POLYURIA
     Route: 048
     Dates: start: 20140312, end: 20140315
  2. FUROSEMIDE [Suspect]
     Indication: CARDIAC FAILURE CONGESTIVE
     Route: 048
     Dates: start: 20140312, end: 20140315

REACTIONS (4)
  - Urticaria [None]
  - Rash generalised [None]
  - Erythema [None]
  - Reaction to drug excipients [None]
